FAERS Safety Report 5797017-1 (Version None)
Quarter: 2008Q3

REPORT INFORMATION
  Report Type: 
  Country: None (occurrence: None)
  Receive Date: 20080701
  Receipt Date: 20080625
  Transmission Date: 20090109
  Serious: Yes (Hospitalization, Other)
  Sender: FDA-Public Use
  Company Number: SE-BAYER-SE-2006-004192

PATIENT
  Age: 44 Year
  Sex: Male

DRUGS (1)
  1. NEBIDO [Suspect]
     Indication: KLINEFELTER'S SYNDROME
     Route: 030
     Dates: start: 20060201, end: 20060201

REACTIONS (3)
  - DYSPNOEA [None]
  - INCORRECT ROUTE OF DRUG ADMINISTRATION [None]
  - MUSCULOSKELETAL CHEST PAIN [None]
